FAERS Safety Report 9340500 (Version 1)
Quarter: 2013Q2

REPORT INFORMATION
  Report Type: Spontaneous
  Country: IT (occurrence: IT)
  Receive Date: 20130610
  Receipt Date: 20130610
  Transmission Date: 20140414
  Serious: Yes (Other)
  Sender: FDA-Public Use
  Company Number: IT-JNJFOC-20130522811

PATIENT
  Age: 46 Year
  Sex: Male

DRUGS (5)
  1. DOXORUBICIN HYDROCHLORIDE (CAELYX) [Suspect]
     Indication: B-CELL LYMPHOMA
     Route: 042
     Dates: start: 20120914, end: 20121005
  2. MABTHERA [Concomitant]
     Indication: B-CELL LYMPHOMA
     Route: 042
     Dates: start: 20120914, end: 20121005
  3. PREDNISONE [Concomitant]
     Indication: B-CELL LYMPHOMA
     Route: 065
     Dates: start: 20120914, end: 20121005
  4. ENDOXAN [Concomitant]
     Indication: B-CELL LYMPHOMA
     Route: 042
     Dates: start: 20120914, end: 20121005
  5. VINCRISTINA [Concomitant]
     Indication: B-CELL LYMPHOMA
     Route: 042
     Dates: start: 20120914, end: 20121005

REACTIONS (1)
  - Troponin increased [Recovering/Resolving]
